FAERS Safety Report 8613532-7 (Version None)
Quarter: 2012Q3

REPORT INFORMATION
  Report Type: 
  Country: None (occurrence: None)
  Receive Date: 20120823
  Receipt Date: 20120808
  Transmission Date: 20120928
  Serious: Yes (Other)
  Sender: FDA-Public Use
  Company Number: US-009507513-1208USA003870

PATIENT

DRUGS (4)
  1. DEXAMETHASONE [Concomitant]
  2. TAC [Concomitant]
  3. EMEND [Suspect]
     Indication: PROPHYLAXIS OF NAUSEA AND VOMITING
     Dosage: UNK
     Route: 048
  4. ZOFRAN [Concomitant]

REACTIONS (1)
  - CONVULSION [None]
